FAERS Safety Report 9383951 (Version 5)
Quarter: 2014Q1

REPORT INFORMATION
  Report Type: Report from Study
  Country: US (occurrence: US)
  Receive Date: 20130705
  Receipt Date: 20140116
  Transmission Date: 20141002
  Serious: Yes (Life-Threatening, Hospitalization, Other)
  Sender: FDA-Public Use
  Company Number: US-ROCHE-1241707

PATIENT
  Age: 77 Year
  Sex: Female

DRUGS (19)
  1. RANIBIZUMAB [Suspect]
     Indication: AGE-RELATED MACULAR DEGENERATION
     Dosage: LAST DOSE RECIEVED ON 06/JUN/2013
     Route: 050
     Dates: start: 20091116
  2. RANIBIZUMAB [Suspect]
     Route: 050
     Dates: start: 20120902
  3. RANIBIZUMAB [Suspect]
     Route: 050
     Dates: start: 20130606
  4. RANIBIZUMAB [Suspect]
     Route: 050
     Dates: start: 20130802
  5. LANSOPRAZOLE [Concomitant]
     Route: 065
     Dates: start: 20120627
  6. PROCHLORPERAZINE [Concomitant]
     Indication: HYPERTENSION
     Route: 065
     Dates: start: 20120629, end: 20130619
  7. CO-AMILOFRUSE [Concomitant]
     Indication: HYPERTENSION
     Route: 065
     Dates: start: 20120627, end: 20130619
  8. METHOCARBAMOL [Concomitant]
     Route: 065
     Dates: start: 20120627, end: 20130619
  9. CLOBETASONE [Concomitant]
     Dosage: CREAM
     Route: 065
  10. CLOPIDOGREL [Concomitant]
     Route: 065
     Dates: start: 20130620
  11. BISOPROLOL FUMARATE [Concomitant]
     Route: 065
     Dates: start: 20130619
  12. BISOPROLOL FUMARATE [Concomitant]
     Route: 065
     Dates: start: 20130625
  13. HYDROCORTISONE [Concomitant]
     Dosage: OINTMENT
     Route: 065
  14. ASPIRIN [Concomitant]
     Route: 065
     Dates: start: 20130619
  15. ASPIRIN [Concomitant]
     Route: 065
     Dates: start: 20130625
  16. PARACETAMOL [Concomitant]
     Route: 065
     Dates: start: 20130701
  17. PARACETAMOL [Concomitant]
     Route: 065
     Dates: start: 20131001
  18. TRAMADOL [Concomitant]
     Route: 065
     Dates: start: 20130717
  19. TRAMADOL [Concomitant]
     Route: 065
     Dates: start: 20131001

REACTIONS (10)
  - Acute myocardial infarction [Recovering/Resolving]
  - Retinal cyst [Not Recovered/Not Resolved]
  - Retinal degeneration [Not Recovered/Not Resolved]
  - Hypertension [Recovered/Resolved]
  - Vertigo [Recovering/Resolving]
  - Obesity [Not Recovered/Not Resolved]
  - Pruritus [Recovered/Resolved]
  - Arthritis [Recovering/Resolving]
  - Cerebrovascular accident [Recovering/Resolving]
  - Hypercholesterolaemia [Recovered/Resolved]
